FAERS Safety Report 6760479-7 (Version None)
Quarter: 2010Q2

REPORT INFORMATION
  Report Type: 
  Country: None (occurrence: None)
  Receive Date: 20100604
  Receipt Date: 20100526
  Transmission Date: 20101027
  Serious: Yes (Hospitalization)
  Sender: FDA-Public Use
  Company Number: 2010SP029906

PATIENT
  Age: 28 Year
  Sex: Female

DRUGS (1)
  1. ISOCEF (CEFTIBUTEN /01166201/) [Suspect]
     Indication: HYPERPYREXIA
     Dosage: 400 MG; QD PO, 400 MG; CAP; PO; QD
     Route: 048
     Dates: start: 20100501, end: 20100507

REACTIONS (2)
  - RASH ERYTHEMATOUS [None]
  - RASH PAPULAR [None]
